FAERS Safety Report 9706388 (Version 1)
Quarter: 2013Q4

REPORT INFORMATION
  Report Type: Spontaneous
  Country: US (occurrence: US)
  Receive Date: 20131125
  Receipt Date: 20131125
  Transmission Date: 20140711
  Serious: No
  Sender: FDA-Public Use
  Company Number: US-BIOGENIDEC-2013BI109450

PATIENT
  Age: 35 Year
  Sex: Female

DRUGS (3)
  1. AVONEX [Suspect]
     Indication: MULTIPLE SCLEROSIS
     Route: 030
     Dates: start: 20130510
  2. TEGRETOL [Concomitant]
     Indication: EPILEPSY
  3. NEURONTIN [Concomitant]
     Indication: EPILEPSY

REACTIONS (2)
  - Underdose [Recovered/Resolved]
  - Injection site reaction [Recovered/Resolved]
